FAERS Safety Report 9507339 (Version 1)
Quarter: 2013Q3

REPORT INFORMATION
  Report Type: Spontaneous
  Country: US (occurrence: US)
  Receive Date: 20130909
  Receipt Date: 20130909
  Transmission Date: 20140515
  Serious: Yes (Other)
  Sender: FDA-Public Use
  Company Number: US-PFIZER INC-2013257521

PATIENT
  Age: 53 Year
  Sex: Female
  Weight: 65.76 kg

DRUGS (2)
  1. LYRICA [Suspect]
     Indication: FIBROMYALGIA
     Dosage: 100 MG, 2X/DAY
     Dates: start: 2010
  2. LYRICA [Suspect]
     Dosage: 75 MG, 2X/DAY

REACTIONS (9)
  - Drug withdrawal syndrome [Unknown]
  - Suicidal ideation [Unknown]
  - Bedridden [Unknown]
  - Activities of daily living impaired [Unknown]
  - Eating disorder [Unknown]
  - Pain [Unknown]
  - Stress [Unknown]
  - Disturbance in attention [Unknown]
  - Head discomfort [Unknown]
